FAERS Safety Report 5699704-2 (Version None)
Quarter: 2008Q2

REPORT INFORMATION
  Report Type: 
  Country: None (occurrence: None)
  Receive Date: 20080410
  Receipt Date: 20080403
  Transmission Date: 20081010
  Serious: Yes (Disabling)
  Sender: FDA-Public Use
  Company Number: PHEH2008US03434

PATIENT
  Age: 58 Year
  Sex: Male
  Weight: 81.632 kg

DRUGS (2)
  1. SUTENT [Concomitant]
     Dates: start: 20070101
  2. ZOMETA [Suspect]
     Indication: METASTASES TO BONE
     Dosage: 4MG ^Q4/Y^
     Route: 042
     Dates: start: 20070101, end: 20080301

REACTIONS (3)
  - OSTEONECROSIS [None]
  - PAIN [None]
  - TOOTH DISORDER [None]
